FAERS Safety Report 9387985 (Version 1)
Quarter: 2013Q3

REPORT INFORMATION
  Report Type: Spontaneous
  Country: BH (occurrence: None)
  Receive Date: 20130703
  Receipt Date: 20130703
  Transmission Date: 20140515
  Serious: Yes (Hospitalization)
  Sender: FDA-Public Use
  Company Number: NSR_01174_2013

PATIENT
  Age: 24 Year
  Sex: Male

DRUGS (1)
  1. FLUOXETINE [Suspect]
     Indication: PREMATURE EJACULATION
     Route: 048

REACTIONS (2)
  - Oesophagitis [None]
  - Chest pain [None]
